FAERS Safety Report 14419290 (Version 1)
Quarter: 2018Q1

REPORT INFORMATION
  Report Type: Spontaneous
  Country: US (occurrence: US)
  Receive Date: 20180122
  Receipt Date: 20180122
  Transmission Date: 20180509
  Serious: Yes (Hospitalization, Other)
  Sender: FDA-Public Use
  Company Number: US-BAYER-2018-013745

PATIENT
  Age: 26 Year
  Sex: Female

DRUGS (1)
  1. MIRENA [Suspect]
     Active Substance: LEVONORGESTREL
     Dosage: 20 MCG/24HR, CONT
     Route: 015

REACTIONS (8)
  - Headache [Unknown]
  - Photophobia [Unknown]
  - Vomiting [Unknown]
  - Papilloedema [Unknown]
  - Nausea [Unknown]
  - Dizziness [Unknown]
  - Idiopathic intracranial hypertension [Unknown]
  - Neck pain [Unknown]
